FAERS Safety Report 8991955 (Version 1)
Quarter: 2012Q4

REPORT INFORMATION
  Report Type: 
  Country: US (occurrence: US)
  Receive Date: 20121231
  Receipt Date: 20121231
  Transmission Date: 20130627
  Serious: No
  Sender: FDA-Public Use
  Company Number: US-009507513-1212USA009519

PATIENT
  Sex: Male

DRUGS (1)
  1. NASONEX [Suspect]
     Dosage: 2 sprays in each nostril daily
     Dates: start: 20121205

REACTIONS (4)
  - No adverse event [Unknown]
  - Underdose [Unknown]
  - Drug dose omission [Unknown]
  - Product quality issue [Unknown]
